FAERS Safety Report 23271296 (Version 1)
Quarter: 2023Q4

REPORT INFORMATION
  Report Type: Report from Study
  Country: JP (occurrence: JP)
  Receive Date: 20231207
  Receipt Date: 20231207
  Transmission Date: 20240110
  Serious: Yes (Death, Life-Threatening, Hospitalization, Other)
  Sender: FDA-Public Use
  Company Number: JP-002147023-NVSJ2022JP005363

PATIENT
  Age: 62 Year
  Sex: Male
  Weight: 50.2 kg

DRUGS (6)
  1. KYMRIAH [Suspect]
     Active Substance: TISAGENLECLEUCEL
     Indication: Diffuse large B-cell lymphoma
     Dosage: FULL DOSE ADMINISTRATION, TOTAL NUMBER OF CELLS ADMINISTERED:3.5X10^2
     Route: 042
     Dates: start: 20210916, end: 20210916
  2. GEMCITABINE [Concomitant]
     Active Substance: GEMCITABINE
     Indication: Chemotherapy multiple agents systemic
     Dosage: UNK
     Route: 065
     Dates: start: 20211121
  3. DEXAMETHASONE [Concomitant]
     Active Substance: DEXAMETHASONE
     Indication: Chemotherapy multiple agents systemic
     Dosage: UNK
     Route: 065
     Dates: start: 20211121
  4. CISPLATIN [Concomitant]
     Active Substance: CISPLATIN
     Indication: Chemotherapy multiple agents systemic
     Dosage: UNK
     Route: 065
     Dates: start: 20211121
  5. CYCLOPHOSPHAMIDE [Concomitant]
     Active Substance: CYCLOPHOSPHAMIDE
     Indication: Lymphodepletion
     Dosage: 750 MG/M2
     Route: 065
     Dates: start: 20210912
  6. FLUDARABINE [Concomitant]
     Active Substance: FLUDARABINE PHOSPHATE
     Indication: Lymphodepletion
     Dosage: 75 MG/M2
     Route: 065
     Dates: start: 20210901

REACTIONS (9)
  - Acute graft versus host disease [Fatal]
  - Diffuse large B-cell lymphoma [Fatal]
  - Malignant neoplasm progression [Fatal]
  - Cytokine release syndrome [Recovered/Resolved]
  - Pyrexia [Unknown]
  - Haemophagocytic lymphohistiocytosis [Unknown]
  - Multiple organ dysfunction syndrome [Unknown]
  - Lymphocyte count decreased [Unknown]
  - Platelet count decreased [Unknown]

NARRATIVE: CASE EVENT DATE: 20210916
